FAERS Safety Report 8461566-8 (Version None)
Quarter: 2012Q2

REPORT INFORMATION
  Report Type: 
  Country: None (occurrence: None)
  Receive Date: 20120625
  Receipt Date: 20120614
  Transmission Date: 20120825
  Serious: Yes (Other)
  Sender: FDA-Public Use
  Company Number: PHEH2012US011839

PATIENT
  Sex: Female

DRUGS (15)
  1. CO2-10 [Concomitant]
     Dosage: 50 MG, QD
     Route: 048
  2. CELEXA [Concomitant]
     Dosage: 20 MG, QD
     Route: 048
  3. CO2-10 [Concomitant]
  4. GINKGO BILOBA [Concomitant]
     Dosage: 120 MG, QD
     Route: 048
  5. RISTERIDONE [Concomitant]
     Dosage: 0.5 MG, QD
     Route: 048
  6. MULTI-VITAMINS [Concomitant]
     Route: 048
  7. CALCIUM [Concomitant]
  8. IRON [Concomitant]
  9. CRESTOR [Concomitant]
     Indication: BLOOD CHOLESTEROL ABNORMAL
     Dosage: 10 MG, QD
     Route: 048
  10. IRON [Concomitant]
     Dosage: 65 MG, QD
  11. EXELON [Suspect]
     Indication: DEMENTIA
     Dosage: 9.5 MG, QD
     Route: 062
  12. MAGNESIUM [Concomitant]
     Route: 048
  13. AMLODIPINE BESYLATE [Concomitant]
     Dosage: 10 MG, QD
     Route: 048
  14. ASPIRIN [Concomitant]
     Dosage: 81 MG, QD
     Route: 048
  15. ZINC SULFATE [Concomitant]

REACTIONS (7)
  - DELUSION [None]
  - SINUSITIS [None]
  - NASOPHARYNGITIS [None]
  - PARANOIA [None]
  - DEMENTIA [None]
  - DEPRESSION [None]
  - DEPRESSED MOOD [None]
